FAERS Safety Report 5647273-5 (Version None)
Quarter: 2008Q1

REPORT INFORMATION
  Report Type: 
  Country: None (occurrence: None)
  Receive Date: 20080303
  Receipt Date: 20080229
  Transmission Date: 20080703
  Serious: Yes (Hospitalization)
  Sender: FDA-Public Use
  Company Number: FR-JNJFOC-20080203087

PATIENT
  Sex: Female

DRUGS (4)
  1. RISPERDAL [Suspect]
     Indication: DRUG USE FOR UNKNOWN INDICATION
     Route: 048
  2. KEPPRA [Suspect]
     Indication: EPILEPSY
     Route: 048
  3. KALETRA [Suspect]
     Indication: HIV TEST POSITIVE
     Route: 048
  4. TRUVADA [Suspect]
     Indication: HIV TEST POSITIVE
     Route: 048

REACTIONS (3)
  - ENCEPHALOPATHY [None]
  - MEMORY IMPAIRMENT [None]
  - SPEECH DISORDER [None]
